FAERS Safety Report 24722210 (Version 1)
Quarter: 2024Q4

REPORT INFORMATION
  Report Type: Spontaneous
  Country: US (occurrence: None)
  Receive Date: 20241211
  Receipt Date: 20241211
  Transmission Date: 20250114
  Serious: Yes (Hospitalization)
  Sender: Public
  Company Number: None

PATIENT
  Sex: Female

DRUGS (3)
  1. FORTEO [Suspect]
     Active Substance: TERIPARATIDE
     Dosage: FREQUENCY : DAILY;?
     Route: 058
     Dates: start: 202410
  2. FORTEO [Concomitant]
     Active Substance: TERIPARATIDE
  3. OFEV [Concomitant]
     Active Substance: NINTEDANIB

REACTIONS (4)
  - Pneumonia [None]
  - Nausea [None]
  - Headache [None]
  - Vomiting [None]
